FAERS Safety Report 9805357 (Version 1)
Quarter: 2014Q1

REPORT INFORMATION
  Report Type: Spontaneous
  Country: US (occurrence: None)
  Receive Date: 20140108
  Receipt Date: 20140108
  Transmission Date: 20141002
  Serious: Yes (Life-Threatening, Hospitalization, Disabling)
  Sender: FDA-Public Use
  Company Number: None

PATIENT
  Age: 31 Year
  Sex: Male
  Weight: 72.58 kg

DRUGS (1)
  1. XANAX [Suspect]
     Indication: ANXIETY
     Route: 048

REACTIONS (1)
  - Malaise [None]
